FAERS Safety Report 6159555-1 (Version None)
Quarter: 2009Q2

REPORT INFORMATION
  Report Type: 
  Country: None (occurrence: None)
  Receive Date: 20090420
  Receipt Date: 20090409
  Transmission Date: 20091009
  Serious: Yes (Hospitalization)
  Sender: FDA-Public Use
  Company Number: US-BAXTER-2009BH005897

PATIENT
  Age: 38 Year
  Sex: Female
  Weight: 67 kg

DRUGS (6)
  1. CYCLOPHOSPHAMIDE [Suspect]
     Indication: BREAST CANCER
     Route: 042
     Dates: start: 20070713
  2. EPIRUBICIN [Suspect]
     Indication: BREAST CANCER
     Route: 042
     Dates: start: 20070713
  3. MYCOLOG [Concomitant]
     Indication: DRUG USE FOR UNKNOWN INDICATION
     Route: 061
  4. METHADONE [Concomitant]
     Indication: DRUG USE FOR UNKNOWN INDICATION
     Route: 048
  5. DILAUDID [Concomitant]
     Indication: DRUG USE FOR UNKNOWN INDICATION
     Route: 048
  6. PROMETHAZINE [Concomitant]
     Indication: DRUG USE FOR UNKNOWN INDICATION
     Route: 048

REACTIONS (4)
  - BACTERAEMIA [None]
  - FEBRILE NEUTROPENIA [None]
  - JUGULAR VEIN THROMBOSIS [None]
  - PANCYTOPENIA [None]
